FAERS Safety Report 26052789 (Version 1)
Quarter: 2025Q4

REPORT INFORMATION
  Report Type: Spontaneous
  Country: GB (occurrence: GB)
  Receive Date: 20251117
  Receipt Date: 20251117
  Transmission Date: 20260119
  Serious: Yes (Other)
  Sender: MYLAN
  Company Number: None

PATIENT
  Sex: Male

DRUGS (12)
  1. METFORMIN [Suspect]
     Active Substance: METFORMIN HYDROCHLORIDE
     Indication: Product used for unknown indication
     Dosage: 500 MILLIGRAM
  2. METFORMIN [Suspect]
     Active Substance: METFORMIN HYDROCHLORIDE
     Dosage: 500 MILLIGRAM
     Route: 065
  3. METFORMIN [Suspect]
     Active Substance: METFORMIN HYDROCHLORIDE
     Dosage: 500 MILLIGRAM
     Route: 065
  4. METFORMIN [Suspect]
     Active Substance: METFORMIN HYDROCHLORIDE
     Dosage: 500 MILLIGRAM
  5. DAPAGLIFLOZIN [Suspect]
     Active Substance: DAPAGLIFLOZIN
     Indication: Product used for unknown indication
     Dosage: 500 MILLIGRAM
  6. DAPAGLIFLOZIN [Suspect]
     Active Substance: DAPAGLIFLOZIN
     Dosage: 500 MILLIGRAM
     Route: 065
  7. DAPAGLIFLOZIN [Suspect]
     Active Substance: DAPAGLIFLOZIN
     Dosage: 500 MILLIGRAM
     Route: 065
  8. DAPAGLIFLOZIN [Suspect]
     Active Substance: DAPAGLIFLOZIN
     Dosage: 500 MILLIGRAM
  9. TELMISARTAN [Suspect]
     Active Substance: TELMISARTAN
     Indication: Blood pressure increased
     Dosage: UNK
  10. TELMISARTAN [Suspect]
     Active Substance: TELMISARTAN
     Dosage: UNK
     Route: 065
  11. TELMISARTAN [Suspect]
     Active Substance: TELMISARTAN
     Dosage: UNK
     Route: 065
  12. TELMISARTAN [Suspect]
     Active Substance: TELMISARTAN
     Dosage: UNK

REACTIONS (1)
  - Arthralgia [Not Recovered/Not Resolved]

NARRATIVE: CASE EVENT DATE: 20221109
